FAERS Safety Report 7331538-5 (Version None)
Quarter: 2011Q1

REPORT INFORMATION
  Report Type: 
  Country: None (occurrence: None)
  Receive Date: 20110304
  Receipt Date: 20110216
  Transmission Date: 20110831
  Serious: Yes (Hospitalization)
  Sender: FDA-Public Use
  Company Number: FR-PFIZER INC-2010074724

PATIENT
  Sex: Male

DRUGS (7)
  1. TRIFLUCAN [Suspect]
     Indication: CANDIDA SEPSIS
     Dosage: 400 MG AFTER DIALYSIS
     Route: 042
     Dates: start: 20100518, end: 20100622
  2. SOMATOSTATIN [Concomitant]
     Dosage: UNK
     Dates: end: 20100522
  3. FUROSEMIDE [Concomitant]
     Dosage: 1500 MG DAILY DOSE
  4. DIPEPTIVEN [Concomitant]
  5. TAZOCILLINE [Suspect]
     Dosage: 4 G, 2X/DAY
     Route: 042
     Dates: start: 20100518, end: 20100529
  6. NEXIUM [Concomitant]
     Dosage: 40 MG, 1X/DAY
  7. CACIT D3 [Concomitant]
     Dosage: 1 DF, 1X/DAY

REACTIONS (3)
  - WOUND HAEMORRHAGE [None]
  - EPISTAXIS [None]
  - PLATELET AGGREGATION ABNORMAL [None]
